FAERS Safety Report 13610866 (Version 16)
Quarter: 2018Q3

REPORT INFORMATION
  Report Type: Report from Study
  Country: IT (occurrence: IT)
  Receive Date: 20170605
  Receipt Date: 20180919
  Transmission Date: 20181010
  Serious: Yes (Life-Threatening, Hospitalization, Other)
  Sender: FDA-Public Use
  Company Number: PHHY2017IT021869

PATIENT
  Age: 13 Year
  Sex: Male
  Weight: 44 kg

DRUGS (30)
  1. GLIVEC [Suspect]
     Active Substance: IMATINIB MESYLATE
     Indication: ACUTE LYMPHOCYTIC LEUKAEMIA
     Dosage: 300 OT, UNK
     Route: 048
     Dates: start: 20160721
  2. VINCRISTINE [Suspect]
     Active Substance: VINCRISTINE
     Indication: CHEMOTHERAPY
     Dosage: 2 MG, QD
     Route: 050
     Dates: start: 20161016, end: 20161016
  3. ADRIBLASTINE [Suspect]
     Active Substance: DOXORUBICIN
     Indication: CHEMOTHERAPY
     Dosage: 34.5 MG, (EV ROUTE)
     Route: 050
     Dates: start: 20170619, end: 20170619
  4. L?ASPARAGINASE [Suspect]
     Active Substance: ASPARAGINASE
     Indication: ACUTE LYMPHOCYTIC LEUKAEMIA
     Dosage: 29400 IU, UNK
     Route: 042
     Dates: end: 20170130
  5. DESAMETASONE [Suspect]
     Active Substance: DEXAMETHASONE
     Indication: CHEMOTHERAPY
     Dosage: 30 MG, QD (EV ROUTE)
     Route: 050
     Dates: start: 20161011, end: 20161015
  6. BACTRIM [Concomitant]
     Active Substance: SULFAMETHOXAZOLE\TRIMETHOPRIM
     Indication: PRODUCT USED FOR UNKNOWN INDICATION
     Dosage: 1X2 TABLET/DAY
     Route: 065
  7. ANTRA [Concomitant]
     Active Substance: OMEPRAZOLE
     Indication: PRODUCT USED FOR UNKNOWN INDICATION
     Dosage: 40 MG, UNK
     Route: 042
  8. CITARABINA [Concomitant]
     Active Substance: CYTARABINE
     Dosage: 3080 MG, BID (EV ROUTE)
     Route: 050
     Dates: start: 20161015, end: 20161015
  9. ETOPOSIDE. [Concomitant]
     Active Substance: ETOPOSIDE
     Indication: PRODUCT USED FOR UNKNOWN INDICATION
     Dosage: 154 MG, BID (EV ROUTE)
     Route: 050
     Dates: start: 20161212, end: 20161214
  10. METHYLPREDNISOLONE. [Concomitant]
     Active Substance: METHYLPREDNISOLONE
     Indication: PRODUCT USED FOR UNKNOWN INDICATION
     Dosage: 10 MG, QD
     Route: 037
     Dates: start: 20161214, end: 20161214
  11. GLIVEC [Suspect]
     Active Substance: IMATINIB MESYLATE
     Dosage: UNK
     Route: 048
     Dates: end: 20161219
  12. GLIVEC [Suspect]
     Active Substance: IMATINIB MESYLATE
     Dosage: 441 MG, QD
     Route: 048
     Dates: start: 20170102
  13. VINCRISTINE [Suspect]
     Active Substance: VINCRISTINE
     Dosage: 2 MG, CYCLIC
     Route: 042
     Dates: start: 20170102, end: 20170223
  14. CEFTAZIDIME. [Concomitant]
     Active Substance: CEFTAZIDIME
     Indication: PRODUCT USED FOR UNKNOWN INDICATION
     Dosage: 1800 MG, TID (EV ROUTE)
     Route: 050
     Dates: start: 20170702, end: 20170708
  15. METHOTREXATE. [Concomitant]
     Active Substance: METHOTREXATE
     Dosage: UNK
     Route: 065
     Dates: start: 20161108
  16. ENAPREN [Concomitant]
     Active Substance: ENALAPRIL MALEATE
     Indication: PRODUCT USED FOR UNKNOWN INDICATION
     Route: 065
     Dates: start: 20170205
  17. CITARABINA [Concomitant]
     Active Substance: CYTARABINE
     Dosage: 3080 MG, BID (EV ROUTE)
     Route: 050
     Dates: start: 20161210, end: 20161214
  18. ADRIBLASTINE [Suspect]
     Active Substance: DOXORUBICIN
     Indication: ACUTE LYMPHOCYTIC LEUKAEMIA
     Dosage: 44.1 MG, (CYCLIC)
     Route: 042
     Dates: end: 20170220
  19. DECADRON [Concomitant]
     Active Substance: DEXAMETHASONE
     Indication: PRODUCT USED FOR UNKNOWN INDICATION
     Dosage: UNK
     Route: 065
  20. VINCRISTINE [Suspect]
     Active Substance: VINCRISTINE
     Indication: ACUTE LYMPHOCYTIC LEUKAEMIA
     Dosage: 2 MG, QD (EV ROUTE)
     Route: 050
     Dates: start: 20161011, end: 20161011
  21. VINCRISTINE [Suspect]
     Active Substance: VINCRISTINE
     Dosage: 2 MG, (EV ROUTE)
     Route: 050
     Dates: start: 20170619, end: 20170619
  22. KCL?RETARD [Concomitant]
     Active Substance: POTASSIUM CHLORIDE
     Indication: PRODUCT USED FOR UNKNOWN INDICATION
     Dosage: 4 DF, QD
     Route: 065
  23. GLIVEC [Suspect]
     Active Substance: IMATINIB MESYLATE
     Dosage: 500 MG ALTERNATED WITH 400 MG DAILY
     Route: 048
  24. CYCLOPHOSPHAMIDE. [Concomitant]
     Active Substance: CYCLOPHOSPHAMIDE
     Indication: PRODUCT USED FOR UNKNOWN INDICATION
     Dosage: 308 MG, QD (EV ROUTE)
     Route: 050
     Dates: start: 20161012, end: 20161014
  25. CITARABINA [Concomitant]
     Active Substance: CYTARABINE
     Indication: PRODUCT USED FOR UNKNOWN INDICATION
     Dosage: 30 MG, QD
     Route: 037
     Dates: start: 20161011, end: 20161011
  26. DESAMETASONE [Suspect]
     Active Substance: DEXAMETHASONE
     Dosage: 13.8 MG, UNK
     Route: 048
     Dates: start: 20170605, end: 20170629
  27. METHOTREXATE. [Concomitant]
     Active Substance: METHOTREXATE
     Indication: PRODUCT USED FOR UNKNOWN INDICATION
     Dosage: 7700 MG, QD (EV ROUTE)
     Route: 065
     Dates: start: 20161011, end: 20161011
  28. METHOTREXATE. [Concomitant]
     Active Substance: METHOTREXATE
     Dosage: 12 MG, QD
     Route: 037
     Dates: start: 20161011, end: 20161011
  29. ERWINIASE [Concomitant]
     Active Substance: ASPARAGINASE
     Indication: PRODUCT USED FOR UNKNOWN INDICATION
     Dosage: 30000 UL, QD (EV ROUTE)
     Route: 050
     Dates: start: 20161215, end: 20161227
  30. PEGASPARGASE [Concomitant]
     Active Substance: PEGASPARGASE
     Indication: PRODUCT USED FOR UNKNOWN INDICATION
     Dosage: 1540 UL, QD (EV ROUTE)
     Route: 050
     Dates: start: 20161016, end: 20161016

REACTIONS (21)
  - Bone marrow failure [Recovered/Resolved]
  - Cough [Recovering/Resolving]
  - Neutropenia [Not Recovered/Not Resolved]
  - Catarrh [Recovering/Resolving]
  - Platelet count decreased [Unknown]
  - Pneumonia [Recovered/Resolved]
  - Neutropenia [Recovered/Resolved]
  - Pulmonary mass [Unknown]
  - Lung infection [Recovered/Resolved]
  - Bone marrow failure [Recovered/Resolved]
  - Pneumonia [Recovered/Resolved]
  - Cytogenetic analysis abnormal [Not Recovered/Not Resolved]
  - Lipase increased [Recovered/Resolved]
  - Neutropenia [Recovered/Resolved]
  - Hyponatraemia [Recovered/Resolved]
  - Arthralgia [Not Recovered/Not Resolved]
  - Pyrexia [Unknown]
  - Sinus tachycardia [Recovered/Resolved]
  - Metabolic disorder [Unknown]
  - Bronchitis [Unknown]
  - Herpes virus infection [Unknown]

NARRATIVE: CASE EVENT DATE: 20161018
